FAERS Safety Report 5376874-7 (Version None)
Quarter: 2007Q2

REPORT INFORMATION
  Report Type: 
  Country: None (occurrence: None)
  Receive Date: 20070628
  Receipt Date: 20070628
  Transmission Date: 20071010
  Serious: Yes (Disabling)
  Sender: FDA-Public Use
  Company Number: None

PATIENT
  Sex: Male
  Weight: 105.6881 kg

DRUGS (3)
  1. DURAGESIC-25 [Suspect]
     Indication: PAIN
     Dosage: 25MG Q 72 HR DERMAL
     Route: 062
     Dates: start: 20011101, end: 20031101
  2. OXYCONTIN [Concomitant]
  3. BEXTRA [Concomitant]

REACTIONS (1)
  - APPLICATION SITE DISCOLOURATION [None]
